FAERS Safety Report 19502175 (Version 1)
Quarter: 2021Q3

REPORT INFORMATION
  Report Type: Spontaneous
  Country: US (occurrence: US)
  Receive Date: 20210706
  Receipt Date: 20210706
  Transmission Date: 20211014
  Serious: Yes (Hospitalization)
  Sender: FDA-Public Use
  Company Number: None

PATIENT
  Age: 30 Year
  Sex: Female

DRUGS (7)
  1. NITROFURANTIN [Concomitant]
     Active Substance: NITROFURANTOIN
  2. ONDASETRON [Concomitant]
     Active Substance: ONDANSETRON
  3. DOCUSATE SOD [Concomitant]
  4. MEDROXYPR AC [Concomitant]
  5. MAKENA [Suspect]
     Active Substance: HYDROXYPROGESTERONE CAPROATE
     Indication: PREMATURE LABOUR
     Dosage: ?          OTHER FREQUENCY:Q7D ;?
     Route: 058
     Dates: start: 20210415
  6. CLINDAMYCIN. [Concomitant]
     Active Substance: CLINDAMYCIN
  7. IBUPROFEN. [Concomitant]
     Active Substance: IBUPROFEN

REACTIONS (2)
  - Maternal exposure timing unspecified [None]
  - Maternal drugs affecting foetus [None]

NARRATIVE: CASE EVENT DATE: 20210704
